FAERS Safety Report 25908710 (Version 2)
Quarter: 2025Q4

REPORT INFORMATION
  Report Type: Report from Study
  Country: US (occurrence: US)
  Receive Date: 20251011
  Receipt Date: 20251017
  Transmission Date: 20260117
  Serious: Yes (Hospitalization)
  Sender: ABBVIE
  Company Number: US-ABBVIE-6493052

PATIENT
  Age: 91 Year
  Sex: Female
  Weight: 46.719 kg

DRUGS (4)
  1. CREON [Suspect]
     Active Substance: PANCRELIPASE AMYLASE\PANCRELIPASE LIPASE\PANCRELIPASE PROTEASE
     Indication: Pancreatic failure
     Dosage: CREON 36000 DR CAPS?FREQUENCY TEXT: TWO PILLS, THREE TIME A DAY WITH MEALS
     Route: 048
     Dates: start: 202507, end: 202509
  2. CREON [Suspect]
     Active Substance: PANCRELIPASE AMYLASE\PANCRELIPASE LIPASE\PANCRELIPASE PROTEASE
     Indication: Pancreatic failure
     Dosage: FREQUENCY TEXT: TWO PILLS, THREE TIME A DAY WITH MEALS
     Route: 048
     Dates: start: 202509
  3. CREON [Suspect]
     Active Substance: PANCRELIPASE AMYLASE\PANCRELIPASE LIPASE\PANCRELIPASE PROTEASE
     Indication: Pancreatic failure
     Dosage: FREQUENCY TEXT: TWO PILLS, THREE TIME A DAY WITH MEALS
     Route: 048
     Dates: start: 202411, end: 202507
  4. LEVOTHYROXINE [Concomitant]
     Active Substance: LEVOTHYROXINE
     Indication: Hypothyroidism

REACTIONS (2)
  - Gastrointestinal obstruction [Recovered/Resolved]
  - Gastrointestinal obstruction [Recovered/Resolved]

NARRATIVE: CASE EVENT DATE: 20250701
